FAERS Safety Report 19009691 (Version 1)
Quarter: 2021Q1

REPORT INFORMATION
  Report Type: Spontaneous
  Country: DE (occurrence: DE)
  Receive Date: 20210315
  Receipt Date: 20210315
  Transmission Date: 20210420
  Serious: Yes (Hospitalization, Other)
  Sender: FDA-Public Use
  Company Number: DE-ALKEM LABORATORIES LIMITED-DE-ALKEM-2021-01137

PATIENT
  Age: 19 Year
  Sex: Male

DRUGS (1)
  1. METHADONE HYDROCHLORIDE. [Suspect]
     Active Substance: METHADONE HYDROCHLORIDE
     Indication: PRODUCT USED FOR UNKNOWN INDICATION
     Dosage: UNK
     Route: 042

REACTIONS (9)
  - Drug abuse [Unknown]
  - Consciousness fluctuating [Unknown]
  - Paraparesis [Recovered/Resolved]
  - Cognitive disorder [Not Recovered/Not Resolved]
  - Clonus [Unknown]
  - Hypoaesthesia [Not Recovered/Not Resolved]
  - Ataxia [Recovered/Resolved]
  - Deafness bilateral [Recovered/Resolved]
  - Encephalopathy [Unknown]
